FAERS Safety Report 4522722-4 (Version None)
Quarter: 2004Q4

REPORT INFORMATION
  Report Type: 
  Country: None (occurrence: None)
  Receive Date: 20041101
  Receipt Date: 20040729
  Transmission Date: 20050328
  Serious: Yes (Other)
  Sender: FDA-Public Use
  Company Number: HQWYE700802AUG04

PATIENT
  Age: 53 Year
  Sex: Female

DRUGS (3)
  1. PREMARIN [Suspect]
  2. PREMPRO [Suspect]
  3. PROVERA [Suspect]

REACTIONS (1)
  - BREAST CANCER [None]
